FAERS Safety Report 4502451-3 (Version None)
Quarter: 2004Q4

REPORT INFORMATION
  Report Type: 
  Country: None (occurrence: None)
  Receive Date: 20041110
  Receipt Date: 20041026
  Transmission Date: 20050328
  Serious: Yes (Hospitalization)
  Sender: FDA-Public Use
  Company Number: 2004PK01850

PATIENT
  Age: 63 Year
  Sex: Female

DRUGS (8)
  1. NEXIUM [Suspect]
     Dosage: 40 MG QD IV
     Route: 042
     Dates: start: 20040101
  2. MERONEM [Concomitant]
  3. L-THYROXIN ^HENNING BERLIN^ [Concomitant]
  4. NOVOLOG [Concomitant]
  5. NEURO-LICHTENSTEIN N [Concomitant]
  6. MULTIBIONTA ZUR INFUSION [Concomitant]
  7. ACC DATES [Concomitant]
  8. HEPARIN ^A.L.^ [Concomitant]

REACTIONS (6)
  - BLINDNESS [None]
  - EYE HAEMORRHAGE [None]
  - PAPILLOEDEMA [None]
  - POLYURIA [None]
  - PUPILLARY DISORDER [None]
  - RHABDOMYOLYSIS [None]
